FAERS Safety Report 15581806 (Version 2)
Quarter: 2019Q2

REPORT INFORMATION
  Report Type: Spontaneous
  Country: US (occurrence: US)
  Receive Date: 20181102
  Receipt Date: 20190503
  Transmission Date: 20190711
  Serious: No
  Sender: FDA-Public Use
  Company Number: US-RADIUS HEALTH INC.-2018US001816

PATIENT
  Sex: Female

DRUGS (1)
  1. TYMLOS [Suspect]
     Active Substance: ABALOPARATIDE
     Indication: OSTEOPOROSIS POSTMENOPAUSAL
     Dosage: 80 CG DAILY
     Route: 058
     Dates: start: 20180201, end: 201807

REACTIONS (3)
  - Weight increased [Unknown]
  - Increased appetite [Unknown]
  - Skin texture abnormal [Unknown]
